FAERS Safety Report 5193388-8 (Version None)
Quarter: 2006Q4

REPORT INFORMATION
  Report Type: 
  Country: None (occurrence: None)
  Receive Date: 20061228
  Receipt Date: 20061031
  Transmission Date: 20070319
  Serious: No
  Sender: FDA-Public Use
  Company Number: US-GLAXOSMITHKLINE-A0625601A

PATIENT
  Sex: Male

DRUGS (2)
  1. AVODART [Suspect]
     Indication: PROSTATIC DISORDER
     Route: 048
  2. NO CONCURRENT MEDICATION [Concomitant]

REACTIONS (1)
  - DRUG ADMINISTRATION ERROR [None]
